FAERS Safety Report 8055722-0 (Version None)
Quarter: 2012Q1

REPORT INFORMATION
  Report Type: 
  Country: None (occurrence: None)
  Receive Date: 20120119
  Receipt Date: 20120112
  Transmission Date: 20120608
  Serious: Yes (Other)
  Sender: FDA-Public Use
  Company Number: US-BAYER-2012-004559

PATIENT

DRUGS (1)
  1. MIDOL PM CAPLETS [Suspect]
     Dosage: 4 DF, UNK
     Route: 048

REACTIONS (1)
  - ASTHENIA [None]
